FAERS Safety Report 24668084 (Version 1)
Quarter: 2024Q4

REPORT INFORMATION
  Report Type: Spontaneous
  Country: IN (occurrence: IN)
  Receive Date: 20241127
  Receipt Date: 20241127
  Transmission Date: 20250114
  Serious: Yes (Other)
  Sender: ROCHE
  Company Number: IN-ROCHE-10000136384

PATIENT
  Age: 66 Year
  Sex: Female

DRUGS (1)
  1. TECENTRIQ [Suspect]
     Active Substance: ATEZOLIZUMAB
     Indication: Ovarian cancer
     Route: 042
     Dates: start: 20240730

REACTIONS (2)
  - Off label use [Unknown]
  - Neoplasm malignant [Unknown]
